FAERS Safety Report 14222288 (Version 7)
Quarter: 2018Q4

REPORT INFORMATION
  Report Type: Report from Study
  Country: AT (occurrence: AT)
  Receive Date: 20171124
  Receipt Date: 20181119
  Transmission Date: 20190204
  Serious: Yes (Hospitalization)
  Sender: FDA-Public Use
  Company Number: AT-TAKEDA-2017TUS024052

PATIENT
  Sex: Male

DRUGS (1)
  1. VEDOLIZUMAB [Suspect]
     Active Substance: VEDOLIZUMAB
     Indication: PRODUCT USED FOR UNKNOWN INDICATION
     Dosage: UNK
     Route: 042
     Dates: start: 20160125, end: 20160504

REACTIONS (3)
  - Intestinal fistula [Unknown]
  - Intestinal stenosis [Recovered/Resolved]
  - Abscess intestinal [Unknown]

NARRATIVE: CASE EVENT DATE: 20170911
